FAERS Safety Report 10866400 (Version 1)
Quarter: 2015Q1

REPORT INFORMATION
  Report Type: Spontaneous
  Country: US (occurrence: None)
  Receive Date: 20150219
  Receipt Date: 20150219
  Transmission Date: 20150721
  Serious: Yes (Hospitalization)
  Sender: FDA-Public Use
  Company Number: None

PATIENT
  Age: 53 Year
  Sex: Female
  Weight: 104.89 kg

DRUGS (11)
  1. LEVOFLOXACIN. [Concomitant]
     Active Substance: LEVOFLOXACIN
  2. LEVOTHYROXINE [Concomitant]
     Active Substance: LEVOTHYROXINE
  3. TAXOL [Suspect]
     Active Substance: PACLITAXEL
     Dates: end: 20150129
  4. CALCIUM [Concomitant]
     Active Substance: CALCIUM
  5. ONDANSETRON [Concomitant]
     Active Substance: ONDANSETRON
  6. ZYRTEC [Concomitant]
     Active Substance: CETIRIZINE HYDROCHLORIDE
  7. LORAZEPAM. [Concomitant]
     Active Substance: LORAZEPAM
  8. ASPIRIN. [Concomitant]
     Active Substance: ASPIRIN
  9. NYSTATIN. [Concomitant]
     Active Substance: NYSTATIN
  10. OXYCODONE [Concomitant]
     Active Substance: OXYCODONE
  11. MONTELUKAST SODIUM. [Concomitant]
     Active Substance: MONTELUKAST SODIUM

REACTIONS (7)
  - Oropharyngeal pain [None]
  - Abdominal pain [None]
  - Cough [None]
  - Sputum discoloured [None]
  - Pyrexia [None]
  - Tracheitis [None]
  - Myalgia [None]

NARRATIVE: CASE EVENT DATE: 20150201
